FAERS Safety Report 9635318 (Version 2)
Quarter: 2013Q4

REPORT INFORMATION
  Report Type: Spontaneous
  Country: US (occurrence: US)
  Receive Date: 20131021
  Receipt Date: 20131021
  Transmission Date: 20140711
  Serious: No
  Sender: FDA-Public Use
  Company Number: US-PURDUE-USA-2013-0102323

PATIENT
  Sex: Male

DRUGS (2)
  1. BUTRANS [Suspect]
     Indication: PRODUCT USED FOR UNKNOWN INDICATION
     Dosage: 10 MCG/HR, UNK
     Route: 062
  2. BUTRANS [Suspect]
     Dosage: 15 MCG/HR (5MCG (LOT NUMBER)+ 10MCG)
     Route: 062

REACTIONS (5)
  - Drug withdrawal syndrome [Unknown]
  - Inadequate analgesia [Unknown]
  - Dizziness [Unknown]
  - Dyspnoea [Unknown]
  - Disturbance in attention [Unknown]
